FAERS Safety Report 7655636-1 (Version None)
Quarter: 2011Q3

REPORT INFORMATION
  Report Type: 
  Country: None (occurrence: None)
  Receive Date: 20110804
  Receipt Date: 20110721
  Transmission Date: 20111222
  Serious: Yes (Other)
  Sender: FDA-Public Use
  Company Number: DE-RANBAXY-2011RR-46501

PATIENT
  Age: 32 Year
  Sex: Male

DRUGS (2)
  1. FLUCONAZOLE [Suspect]
     Indication: FUNGAL INFECTION
     Dosage: UNK
     Route: 065
     Dates: start: 20110711
  2. FLUCONAZOLE [Suspect]
     Indication: ONYCHOMYCOSIS

REACTIONS (4)
  - SWELLING FACE [None]
  - DRUG INEFFECTIVE [None]
  - ASTHENIA [None]
  - HYPERHIDROSIS [None]
